FAERS Safety Report 7336408-4 (Version None)
Quarter: 2011Q2

REPORT INFORMATION
  Report Type: 
  Country: None (occurrence: None)
  Receive Date: 20110307
  Receipt Date: 20110223
  Transmission Date: 20111010
  Serious: Yes (Hospitalization, Other)
  Sender: FDA-Public Use
  Company Number: PHHY2009JP33662

PATIENT
  Sex: Male

DRUGS (19)
  1. FLOMOX [Suspect]
     Dosage: 300 MG
     Route: 048
     Dates: start: 20081203, end: 20090203
  2. EXJADE [Suspect]
     Indication: MYELODYSPLASTIC SYNDROME
     Dosage: 1000 MG DAILY
     Route: 048
     Dates: start: 20081015, end: 20081203
  3. LOXONIN [Suspect]
     Dosage: 60 MG
     Route: 048
     Dates: start: 20081126, end: 20090311
  4. LOXONIN [Suspect]
     Dosage: 60 MG
     Route: 048
     Dates: start: 20090603, end: 20090806
  5. NEO-MINOPHAGEN C [Concomitant]
     Dosage: 40 ML
     Route: 042
     Dates: start: 20080903, end: 20081217
  6. BIFIDOBACTERIUM [Suspect]
     Indication: MYELODYSPLASTIC SYNDROME
     Dosage: 3 G
     Route: 048
     Dates: start: 20050314, end: 20090806
  7. CYTOTEC [Suspect]
     Dosage: 200 MG
     Route: 048
     Dates: start: 20081126, end: 20090311
  8. DESFERAL [Concomitant]
     Dosage: 1000 MG
     Route: 030
     Dates: start: 20081015, end: 20081105
  9. FLURBIPROFEN [Concomitant]
     Dosage: 50 MG, UNK
     Route: 017
     Dates: start: 20090702, end: 20090706
  10. MEROPEN [Concomitant]
     Dosage: 1 G, UNK
     Route: 042
     Dates: start: 20090702, end: 20090702
  11. PRIMOBOLAN-DEPOT INJ [Suspect]
     Indication: MYELODYSPLASTIC SYNDROME
     Dosage: 20 MG
     Route: 048
     Dates: start: 20050224, end: 20090806
  12. LEVOFLOXACIN [Suspect]
     Dosage: 300 MG
     Route: 048
     Dates: start: 20081022, end: 20081028
  13. MS REISHIPPU [Concomitant]
     Dosage: UNK
     Dates: start: 20090702, end: 20090806
  14. EXJADE [Suspect]
     Indication: IRON OVERLOAD
     Dosage: 500 MG DAILY
     Route: 048
     Dates: start: 20081204
  15. WARFARIN SODIUM [Suspect]
     Dosage: 3 MG
     Route: 048
     Dates: start: 20090703, end: 20091013
  16. FLOMOX [Suspect]
     Dosage: 300 MG
     Route: 048
     Dates: start: 20080315, end: 20081022
  17. FLOMOX [Suspect]
     Dosage: 300 MG
     Route: 048
     Dates: start: 20090624, end: 20090630
  18. CYTOTEC [Suspect]
     Dosage: 200 MG
     Route: 048
     Dates: start: 20090603, end: 20090806
  19. SULBACTAM SODIUM [Concomitant]
     Dosage: 2 G, UNK
     Route: 042
     Dates: start: 20090703, end: 20090706

REACTIONS (7)
  - DEEP VEIN THROMBOSIS [None]
  - OEDEMA PERIPHERAL [None]
  - RENAL IMPAIRMENT [None]
  - DECREASED APPETITE [None]
  - LIVER DISORDER [None]
  - UPPER RESPIRATORY TRACT INFECTION [None]
  - PANCYTOPENIA [None]
